FAERS Safety Report 20855068 (Version 1)
Quarter: 2022Q2

REPORT INFORMATION
  Report Type: Spontaneous
  Country: US (occurrence: None)
  Receive Date: 20220520
  Receipt Date: 20220520
  Transmission Date: 20220720
  Serious: Yes (Hospitalization)
  Sender: FDA-Public Use
  Company Number: None

PATIENT
  Age: 89 Year
  Sex: Female
  Weight: 38.6 kg

DRUGS (3)
  1. LAMIVUDINE [Suspect]
     Active Substance: LAMIVUDINE
     Dosage: 100MG ONCE DAILY ORAL
     Route: 048
  2. METOPROLOL [Concomitant]
     Active Substance: METOPROLOL
  3. TORSEMIDE [Concomitant]

REACTIONS (1)
  - Therapy interrupted [None]
